FAERS Safety Report 15661165 (Version 1)
Quarter: 2018Q4

REPORT INFORMATION
  Report Type: Spontaneous
  Country: US (occurrence: US)
  Receive Date: 20181127
  Receipt Date: 20181127
  Transmission Date: 20190205
  Serious: Yes (Other)
  Sender: FDA-Public Use
  Company Number: US-PFIZER INC-2018482567

PATIENT
  Age: 77 Year
  Sex: Female
  Weight: 65.32 kg

DRUGS (2)
  1. LEVOTHYROXINE. [Concomitant]
     Active Substance: LEVOTHYROXINE
     Indication: THYROID DISORDER
     Dosage: 150 UG, 1X/DAY (ONCE A DAY BEFORE BREAKFAST )
  2. IBRANCE [Suspect]
     Active Substance: PALBOCICLIB
     Indication: BREAST CANCER METASTATIC
     Dosage: 125 MG, CYCLIC (ONCE A DAY AT 8^O CLOCK AT NIGHT FOR 21 DAYS )
     Route: 048
     Dates: start: 201801

REACTIONS (2)
  - Alopecia [Unknown]
  - Cataract [Not Recovered/Not Resolved]
